FAERS Safety Report 18751446 (Version 1)
Quarter: 2021Q1

REPORT INFORMATION
  Report Type: Spontaneous
  Country: ES (occurrence: ES)
  Receive Date: 20210118
  Receipt Date: 20210118
  Transmission Date: 20210419
  Serious: Yes (Death, Other)
  Sender: FDA-Public Use
  Company Number: ES-ROCHE-2747987

PATIENT
  Age: 76 Year
  Sex: Male
  Weight: 83 kg

DRUGS (4)
  1. FUROSEMIDE. [Suspect]
     Active Substance: FUROSEMIDE
     Indication: POLYURIA
     Dosage: THE RATE OF PC FUROSEMIDE VARIED THROUGHOUT THE DAYS, RECEIVING THE FOLLOWING DOSE OF FUROSEMIDE PER
     Route: 042
     Dates: start: 20200328, end: 20200331
  2. TOCILIZUMAB. [Suspect]
     Active Substance: TOCILIZUMAB
     Indication: COVID-19
     Dosage: MOST RECENT DOSE PRIOR TO AE 25/MAR/2020
     Route: 042
     Dates: start: 20200324
  3. LOPINAVIR;RITONAVIR [Suspect]
     Active Substance: LOPINAVIR\RITONAVIR
     Indication: COVID-19
     Dosage: 400 MG C/12 H?MOST RECENT DOSE PRIOR TO AE 03/APR/2020
     Route: 048
     Dates: start: 20200323
  4. HIDROXICLOROQUINA SULFATO [Suspect]
     Active Substance: HYDROXYCHLOROQUINE SULFATE
     Indication: COVID-19
     Dosage: 400 MG EVERY 12 H 1ST DAY, THEN 200 MG EVERY 12 H?MOST RECENT DOSE PRIOR TO AE 01/APR/2020
     Route: 048
     Dates: start: 20200323

REACTIONS (4)
  - Pancreatitis acute [Fatal]
  - Drug interaction [Unknown]
  - Hypernatraemia [Recovered/Resolved]
  - Acute kidney injury [Recovered/Resolved]

NARRATIVE: CASE EVENT DATE: 20200329
